FAERS Safety Report 13597523 (Version 1)
Quarter: 2017Q2

REPORT INFORMATION
  Report Type: Spontaneous
  Country: US (occurrence: US)
  Receive Date: 20170531
  Receipt Date: 20170531
  Transmission Date: 20170830
  Serious: Yes (Hospitalization)
  Sender: FDA-Public Use
  Company Number: US-WEST-WARD PHARMACEUTICALS CORP.-US-H14001-17-01704

PATIENT
  Age: 80 Year
  Sex: Female

DRUGS (3)
  1. DIGOXIN. [Suspect]
     Active Substance: DIGOXIN
     Indication: VENTRICULAR ARRHYTHMIA
     Route: 065
  2. DILTIAZEM. [Concomitant]
     Active Substance: DILTIAZEM
     Indication: VENTRICULAR ARRHYTHMIA
     Route: 065
  3. METOPROLOL. [Concomitant]
     Active Substance: METOPROLOL
     Indication: VENTRICULAR ARRHYTHMIA
     Route: 065

REACTIONS (9)
  - Mental status changes [Recovered/Resolved]
  - Bradycardia [Recovered/Resolved]
  - Diarrhoea [Recovered/Resolved]
  - Accidental overdose [Recovered/Resolved]
  - Lethargy [Recovered/Resolved]
  - Toxicity to various agents [Recovered/Resolved]
  - Atrioventricular block complete [Recovered/Resolved]
  - Nausea [Recovered/Resolved]
  - Vision blurred [Recovered/Resolved]
